FAERS Safety Report 18262874 (Version 1)
Quarter: 2020Q3

REPORT INFORMATION
  Report Type: Spontaneous
  Country: GB (occurrence: GB)
  Receive Date: 20200914
  Receipt Date: 20200914
  Transmission Date: 20201103
  Serious: Yes (Other)
  Sender: FDA-Public Use
  Company Number: GB-PFIZER INC-2020353089

PATIENT
  Sex: Male

DRUGS (4)
  1. BINIMETINIB [Suspect]
     Active Substance: BINIMETINIB
     Dosage: 30 MG, 2X/DAY
     Route: 048
  2. ENCORAFENIB [Suspect]
     Active Substance: ENCORAFENIB
     Indication: METASTATIC MALIGNANT MELANOMA
     Dosage: 450 MG, 1X/DAY
     Route: 048
     Dates: start: 20200625
  3. BINIMETINIB [Suspect]
     Active Substance: BINIMETINIB
     Indication: METASTATIC MALIGNANT MELANOMA
     Dosage: 45 MG, 2X/DAY
     Route: 048
     Dates: start: 20200625
  4. ENCORAFENIB [Suspect]
     Active Substance: ENCORAFENIB
     Dosage: 300 MG, 1X/DAY
     Route: 048

REACTIONS (3)
  - Renal impairment [Recovered/Resolved]
  - Hepatic function abnormal [Recovered/Resolved]
  - Blood creatine phosphokinase increased [Recovered/Resolved]
